FAERS Safety Report 8892020 (Version 1)
Quarter: 2012Q4

REPORT INFORMATION
  Report Type: Spontaneous
  Country: US (occurrence: None)
  Receive Date: 20121031
  Receipt Date: 20121031
  Transmission Date: 20130627
  Serious: Yes (Hospitalization)
  Sender: FDA-Public Use
  Company Number: 120474

PATIENT
  Age: 74 Year
  Sex: Female
  Weight: 51.71 kg

DRUGS (1)
  1. SUPREP BOWEL PREP KIT [Suspect]
     Indication: COLONOSCOPY
     Dosage: 2 X 6OZ BOTTLE/1X/PO
     Route: 048
     Dates: start: 20120603

REACTIONS (2)
  - Electrocardiogram abnormal [None]
  - Atrial fibrillation [None]
